FAERS Safety Report 5445692-3 (Version None)
Quarter: 2007Q3

REPORT INFORMATION
  Report Type: 
  Country: None (occurrence: None)
  Receive Date: 20070904
  Receipt Date: 20070824
  Transmission Date: 20080115
  Serious: Yes (Death)
  Sender: FDA-Public Use
  Company Number: 13889191

PATIENT
  Sex: Male

DRUGS (18)
  1. EMSAM [Suspect]
     Indication: DEPRESSION
     Dosage: 6 MILLIGRAM, 1/24 HOUR , TD
     Route: 062
     Dates: start: 20070101
  2. CYMBALTA [Concomitant]
  3. IMDUR [Concomitant]
  4. ACTOS [Concomitant]
  5. CRESTOR [Concomitant]
  6. EXCEDRIN (MIGRAINE) [Concomitant]
  7. FUROSEMIDE [Concomitant]
  8. NITROQUICK [Concomitant]
  9. PERCOCET [Concomitant]
  10. PLAVIX [Concomitant]
  11. PREVACID [Concomitant]
  12. LISINOPRIL [Concomitant]
  13. NEURONTIN [Concomitant]
  14. NIACIN [Concomitant]
  15. NITROGLYCERIN [Concomitant]
  16. TOPROL-XL [Concomitant]
  17. TRICOR [Concomitant]
  18. ZETIA [Concomitant]

REACTIONS (1)
  - SUDDEN DEATH [None]
